FAERS Safety Report 8101708-7 (Version None)
Quarter: 2012Q1

REPORT INFORMATION
  Report Type: 
  Country: None (occurrence: None)
  Receive Date: 20120131
  Receipt Date: 20120119
  Transmission Date: 20120608
  Serious: Yes (Hospitalization)
  Sender: FDA-Public Use
  Company Number: NL-MEDIMMUNE-MEDI-0014686

PATIENT
  Sex: Male
  Weight: 8 kg

DRUGS (1)
  1. SYNAGIS [Suspect]
     Indication: HEART DISEASE CONGENITAL
     Route: 030
     Dates: start: 20110920, end: 20120111

REACTIONS (7)
  - DYSPNOEA [None]
  - PHARYNGITIS [None]
  - VIRAL INFECTION [None]
  - EYE INFLAMMATION [None]
  - INNER EAR INFLAMMATION [None]
  - BACTERIAL INFECTION [None]
  - PYREXIA [None]
